FAERS Safety Report 8277994-X (Version None)
Quarter: 2012Q2

REPORT INFORMATION
  Report Type: 
  Country: None (occurrence: None)
  Receive Date: 20120412
  Receipt Date: 20120410
  Transmission Date: 20120825
  Serious: Yes (Life-Threatening, Hospitalization)
  Sender: FDA-Public Use
  Company Number: GB-PFIZER INC-2012088870

PATIENT
  Age: 70 Year
  Sex: Female

DRUGS (7)
  1. AMITRIPTYLINE HYDROCHLORIDE [Concomitant]
     Dosage: 10 MG, 1X/DAY
     Dates: start: 20021031
  2. SIMVASTATIN [Concomitant]
     Indication: HYPERTENSION
     Dosage: 40 MG, 1X/DAY
     Dates: start: 20110401
  3. BENDROFLUMETHIAZIDE [Concomitant]
     Indication: HYPERTENSION
     Dosage: 2.50 MG, 1X/DAY
  4. OMEPRAZOLE [Concomitant]
     Indication: ABDOMINAL PAIN UPPER
     Dosage: 20 MG, 1X/DAY
     Dates: start: 20080501
  5. OMEPRAZOLE [Concomitant]
     Dosage: 40 MG, UNK
     Dates: start: 20080501
  6. IBUPROFEN TABLETS [Suspect]
     Indication: OSTEOARTHRITIS
     Dosage: 400 MG, 3X/DAY
     Route: 048
     Dates: start: 20090127, end: 20120229
  7. ACETAMINOPHEN AND CODEINE PHOSPHATE [Concomitant]
     Dosage: 1000 MG, 4X/DAY
     Dates: start: 20060831

REACTIONS (1)
  - MYOCARDIAL INFARCTION [None]
